FAERS Safety Report 5470561-2 (Version None)
Quarter: 2007Q3

REPORT INFORMATION
  Report Type: 
  Country: None (occurrence: None)
  Receive Date: 20070928
  Receipt Date: 20070924
  Transmission Date: 20080115
  Serious: Yes (Other)
  Sender: FDA-Public Use
  Company Number: PHEH2007US12710

PATIENT
  Sex: Male

DRUGS (1)
  1. LOPRESSOR [Suspect]
     Indication: HYPERTENSION
     Dosage: 25 MG, QD
     Route: 048

REACTIONS (3)
  - CONFUSIONAL STATE [None]
  - DIALYSIS [None]
  - FATIGUE [None]
